FAERS Safety Report 24701636 (Version 1)
Quarter: 2024Q4

REPORT INFORMATION
  Report Type: Spontaneous
  Country: CN (occurrence: CN)
  Receive Date: 20241205
  Receipt Date: 20241205
  Transmission Date: 20250115
  Serious: Yes (Other)
  Sender: ELI LILLY AND COMPANY
  Company Number: CN-Merck Healthcare KGaA-2024062894

PATIENT
  Age: 64 Year
  Sex: Female
  Weight: 51 kg

DRUGS (4)
  1. ERBITUX [Suspect]
     Active Substance: CETUXIMAB
     Indication: Adenocarcinoma of colon
     Dosage: 800 MG, UNKNOWN
     Route: 042
     Dates: start: 20240116, end: 20240116
  2. OXALIPLATIN [Suspect]
     Active Substance: OXALIPLATIN
     Indication: Adenocarcinoma of colon
     Dosage: 130 MG, DAILY
     Route: 042
     Dates: start: 20240116, end: 20240116
  3. FLUOROURACIL [Suspect]
     Active Substance: FLUOROURACIL
     Indication: Adenocarcinoma of colon
     Dosage: 600 MG, DAILY
     Route: 042
     Dates: start: 20240116, end: 20240116
  4. FLUOROURACIL [Suspect]
     Active Substance: FLUOROURACIL
     Dosage: 3500 MG, DAILY
     Route: 042
     Dates: start: 20240116, end: 20240117

REACTIONS (1)
  - Myelosuppression [Recovering/Resolving]

NARRATIVE: CASE EVENT DATE: 20240202
